FAERS Safety Report 15787880 (Version 3)
Quarter: 2019Q1

REPORT INFORMATION
  Report Type: Spontaneous
  Country: US (occurrence: US)
  Receive Date: 20190104
  Receipt Date: 20190123
  Transmission Date: 20190417
  Serious: Yes (Hospitalization, Other)
  Sender: FDA-Public Use
  Company Number: US-CIPLA LTD.-2018US24084

PATIENT

DRUGS (4)
  1. AMLODIPINE [Suspect]
     Active Substance: AMLODIPINE BESYLATE
     Dosage: 16 DF, (16 TABLETS OF 80 MG EACH)
     Route: 048
     Dates: start: 20171109
  2. SERTRALINE [Suspect]
     Active Substance: SERTRALINE HYDROCHLORIDE
     Dosage: 20 DF (20 TABLETS), UNK
     Route: 048
     Dates: start: 20171109
  3. METFORMIN [Suspect]
     Active Substance: METFORMIN HYDROCHLORIDE
     Dosage: 30 DF (30 TABLETS OF 500 MG), UNK
     Route: 048
     Dates: start: 20171109
  4. METHOCARBAMOL. [Suspect]
     Active Substance: METHOCARBAMOL
     Dosage: UNK, AN UNKNOWN AMOUNT
     Route: 048
     Dates: start: 20171109

REACTIONS (9)
  - Electrocardiogram QT prolonged [Recovered/Resolved]
  - Treatment noncompliance [Unknown]
  - Intentional overdose [Unknown]
  - Toxicity to various agents [Recovered/Resolved]
  - Sinus tachycardia [Recovered/Resolved]
  - Electrocardiogram T wave inversion [Recovered/Resolved]
  - Shock [Recovered/Resolved]
  - Blood lactic acid increased [Recovered/Resolved]
  - Suicidal ideation [Unknown]

NARRATIVE: CASE EVENT DATE: 20171109
